FAERS Safety Report 12390106 (Version 3)
Quarter: 2016Q3

REPORT INFORMATION
  Report Type: Spontaneous
  Country: US (occurrence: US)
  Receive Date: 20160520
  Receipt Date: 20160713
  Transmission Date: 20161109
  Serious: Yes (Hospitalization)
  Sender: FDA-Public Use
  Company Number: US-JNJFOC-20160516835

PATIENT
  Age: 65 Year
  Sex: Female

DRUGS (1)
  1. LEVAQUIN [Suspect]
     Active Substance: LEVOFLOXACIN
     Indication: GASTROINTESTINAL INFECTION
     Route: 048
     Dates: start: 20090113, end: 20090118

REACTIONS (3)
  - Head titubation [Not Recovered/Not Resolved]
  - Loss of consciousness [Recovered/Resolved]
  - Cerebrovascular accident [Not Recovered/Not Resolved]

NARRATIVE: CASE EVENT DATE: 200901
